FAERS Safety Report 7416792-3 (Version None)
Quarter: 2011Q2

REPORT INFORMATION
  Report Type: 
  Country: None (occurrence: None)
  Receive Date: 20110406
  Receipt Date: 20110331
  Transmission Date: 20111010
  Serious: Yes (Other)
  Sender: FDA-Public Use
  Company Number: 2011SP012692

PATIENT
  Sex: Female

DRUGS (3)
  1. BRICANYL [Concomitant]
  2. NEXPLANON (ETONOGESTREL /01502301/) [Suspect]
     Indication: CONTRACEPTION
     Dates: start: 20110112, end: 20110214
  3. NEXPLANON (ETONOGESTREL /01502301/) [Suspect]

REACTIONS (1)
  - HYPERSENSITIVITY [None]
